FAERS Safety Report 7687165-3 (Version None)
Quarter: 2011Q3

REPORT INFORMATION
  Report Type: 
  Country: None (occurrence: None)
  Receive Date: 20110816
  Receipt Date: 20110805
  Transmission Date: 20111222
  Serious: Yes (Other)
  Sender: FDA-Public Use
  Company Number: PHEH2010US03863

PATIENT
  Sex: Male

DRUGS (1)
  1. ZOMETA [Suspect]
     Route: 042

REACTIONS (24)
  - ISCHAEMIA [None]
  - RENAL CYST [None]
  - ARTERIOSCLEROSIS [None]
  - BONE DISORDER [None]
  - DYSPNOEA [None]
  - PYREXIA [None]
  - OSTEONECROSIS OF JAW [None]
  - CARDIOMEGALY [None]
  - ABDOMINAL HERNIA [None]
  - MULTIPLE MYELOMA [None]
  - ATELECTASIS [None]
  - INTERVERTEBRAL DISC DEGENERATION [None]
  - BONE NEOPLASM MALIGNANT [None]
  - COLON CANCER [None]
  - PAIN IN EXTREMITY [None]
  - CHEST PAIN [None]
  - PLEURAL EFFUSION [None]
  - PAIN [None]
  - PROSTATE CANCER [None]
  - HYPOAESTHESIA [None]
  - SPINAL COMPRESSION FRACTURE [None]
  - LUNG NEOPLASM [None]
  - PNEUMONIA [None]
  - BACK PAIN [None]
